FAERS Safety Report 6696302-9 (Version None)
Quarter: 2010Q2

REPORT INFORMATION
  Report Type: 
  Country: None (occurrence: None)
  Receive Date: 20100426
  Receipt Date: 20100412
  Transmission Date: 20101027
  Serious: Yes (Hospitalization)
  Sender: FDA-Public Use
  Company Number: BR-TEVA-231242USA

PATIENT
  Sex: Female

DRUGS (3)
  1. DESOGESTREL AND ETHINYL ESTRADIOL [Suspect]
     Indication: CYST
     Route: 048
     Dates: start: 20090801
  2. DESOGESTREL AND ETHINYL ESTRADIOL [Suspect]
     Indication: MENSTRUAL DISORDER
  3. DIANE [Concomitant]

REACTIONS (4)
  - METRORRHAGIA [None]
  - MIGRAINE [None]
  - OFF LABEL USE [None]
  - PHARYNGITIS [None]
